FAERS Safety Report 5532350-X (Version None)
Quarter: 2007Q4

REPORT INFORMATION
  Report Type: 
  Country: None (occurrence: None)
  Receive Date: 20071203
  Receipt Date: 20071121
  Transmission Date: 20080405
  Serious: Yes (Hospitalization, Other)
  Sender: FDA-Public Use
  Company Number: US-AMGEN-QUU253663

PATIENT
  Sex: Male

DRUGS (1)
  1. ENBREL [Suspect]
     Indication: RHEUMATOID ARTHRITIS
     Dates: start: 20021101

REACTIONS (7)
  - ARTHRALGIA [None]
  - BACK PAIN [None]
  - CATHETER SITE HAEMORRHAGE [None]
  - CHRONIC MYELOID LEUKAEMIA [None]
  - EYE INFECTION [None]
  - MUSCULOSKELETAL STIFFNESS [None]
  - SPINAL DECOMPRESSION [None]
